FAERS Safety Report 4991152-3 (Version None)
Quarter: 2006Q2

REPORT INFORMATION
  Report Type: 
  Country: None (occurrence: None)
  Receive Date: 20060428
  Receipt Date: 20060418
  Transmission Date: 20061013
  Serious: Yes (Hospitalization, Other)
  Sender: FDA-Public Use
  Company Number: 2006016168

PATIENT
  Age: 40 Year
  Sex: Female
  Weight: 86.1834 kg

DRUGS (1)
  1. BENADRYL ALLERGY/SINUS (DIPHENHYDRAMINE, PSEUDOEPHEDRINE) [Suspect]
     Indication: SINUS DISORDER
     Dosage: DOSE TWO TIMES DAILY, ORAL
     Route: 048
     Dates: start: 20051101, end: 20051107

REACTIONS (9)
  - CHEST PAIN [None]
  - COMPLICATED MIGRAINE [None]
  - FEELING ABNORMAL [None]
  - FIBRIN D DIMER INCREASED [None]
  - HEMIPARESIS [None]
  - HYPERTENSION [None]
  - MEAN CELL HAEMOGLOBIN DECREASED [None]
  - VISUAL ACUITY REDUCED [None]
  - VISUAL DISTURBANCE [None]
